FAERS Safety Report 8265849-6 (Version None)
Quarter: 2012Q2

REPORT INFORMATION
  Report Type: 
  Country: None (occurrence: None)
  Receive Date: 20120406
  Receipt Date: 20110131
  Transmission Date: 20120825
  Serious: Yes (Other)
  Sender: FDA-Public Use
  Company Number: US-GLAXOSMITHKLINE-A0912059A

PATIENT
  Age: 61 Year
  Sex: Female
  Weight: 62.7 kg

DRUGS (5)
  1. COMBIVENT [Concomitant]
     Dosage: 2PUFF TWICE PER DAY
     Route: 055
  2. ADVAIR DISKUS 100/50 [Suspect]
     Indication: ASTHMA
     Route: 065
     Dates: start: 20070101, end: 20110120
  3. ADVAIR DISKUS 100/50 [Suspect]
     Route: 065
     Dates: start: 20110125, end: 20110101
  4. STEROID [Concomitant]
     Indication: BRONCHITIS
  5. ANTIBIOTIC [Concomitant]
     Indication: BRONCHITIS

REACTIONS (8)
  - TREMOR [None]
  - CATARACT [None]
  - NERVOUSNESS [None]
  - BRONCHIAL DISORDER [None]
  - ARTHRALGIA [None]
  - CONDITION AGGRAVATED [None]
  - PSYCHOMOTOR HYPERACTIVITY [None]
  - BONE PAIN [None]
